FAERS Safety Report 22239425 (Version 1)
Quarter: 2023Q2

REPORT INFORMATION
  Report Type: Spontaneous
  Country: US (occurrence: US)
  Receive Date: 20230421
  Receipt Date: 20230421
  Transmission Date: 20230722
  Serious: Yes (Hospitalization)
  Sender: FDA-Public Use
  Company Number: US-MYLANLABS-2023M1042012

PATIENT
  Age: 80 Year
  Sex: Female

DRUGS (9)
  1. MIDODRINE [Suspect]
     Active Substance: MIDODRINE
     Indication: Dialysis hypotension
     Dosage: UNK
     Route: 065
  2. HYDROCORTISONE [Concomitant]
     Active Substance: HYDROCORTISONE
     Indication: Antiinflammatory therapy
     Dosage: UNK
     Route: 061
  3. ALOE VERA EXTRACT [Concomitant]
     Indication: Product used for unknown indication
     Dosage: UNK
     Route: 065
  4. LIDOCAINE [Concomitant]
     Active Substance: LIDOCAINE
     Indication: Product used for unknown indication
     Dosage: UNK
     Route: 065
  5. REPAGLINIDE [Concomitant]
     Active Substance: REPAGLINIDE
     Indication: Diabetes mellitus
     Dosage: 1 MILLIGRAM, TID, THREE TIMES DAILY
     Route: 065
  6. SITAGLIPTIN [Concomitant]
     Active Substance: SITAGLIPTIN
     Indication: Diabetes mellitus
     Dosage: 50 MILLIGRAM, QD
     Route: 065
  7. SEVELAMER [Concomitant]
     Active Substance: SEVELAMER
     Indication: Diabetes mellitus
     Dosage: 800 MILLIGRAM, BID
     Route: 065
  8. PIPERACILLIN AND TAZOBACTAM [Concomitant]
     Active Substance: PIPERACILLIN SODIUM\TAZOBACTAM SODIUM
     Indication: Antibiotic therapy
     Dosage: 2.25 GRAM, Q8H, FOR 10 DAYS
     Route: 065
  9. VANCOMYCIN [Concomitant]
     Active Substance: VANCOMYCIN
     Indication: Antibiotic therapy
     Dosage: 1 GRAM, FOR 3 DAY
     Route: 065

REACTIONS (1)
  - Drug ineffective [Unknown]
